FAERS Safety Report 25390132 (Version 4)
Quarter: 2025Q3

REPORT INFORMATION
  Report Type: Spontaneous
  Country: US (occurrence: US)
  Receive Date: 20250603
  Receipt Date: 20250718
  Transmission Date: 20251021
  Serious: No
  Sender: PFIZER
  Company Number: US-PFIZER INC-202500111533

PATIENT
  Age: 8 Year
  Sex: Male

DRUGS (1)
  1. NGENLA [Suspect]
     Active Substance: SOMATROGON-GHLA
     Dosage: 10 MG, WEEKLY

REACTIONS (2)
  - Product dose omission issue [Unknown]
  - Product communication issue [Unknown]
